FAERS Safety Report 25675150 (Version 1)
Quarter: 2025Q3

REPORT INFORMATION
  Report Type: Spontaneous
  Country: US (occurrence: US)
  Receive Date: 20250813
  Receipt Date: 20250813
  Transmission Date: 20251021
  Serious: No
  Sender: BIOGEN
  Company Number: US-BIOGEN-2025BI01319388

PATIENT
  Age: 40 Year
  Sex: Female

DRUGS (2)
  1. VUMERITY [Suspect]
     Active Substance: DIROXIMEL FUMARATE
     Indication: Multiple sclerosis
     Route: 050
     Dates: start: 20250722, end: 20250728
  2. VUMERITY [Suspect]
     Active Substance: DIROXIMEL FUMARATE
     Dosage: START DATE ALSO REPORTED AS 05-AUG-2025
     Route: 050
     Dates: start: 20250729, end: 20250730

REACTIONS (4)
  - Muscular weakness [Unknown]
  - Mental impairment [Recovered/Resolved]
  - Decreased appetite [Recovered/Resolved]
  - Hypersensitivity [Recovered/Resolved]

NARRATIVE: CASE EVENT DATE: 20250722
